FAERS Safety Report 8820914 (Version 1)
Quarter: 2012Q4

REPORT INFORMATION
  Report Type: 
  Country: US (occurrence: US)
  Receive Date: 20121002
  Receipt Date: 20121002
  Transmission Date: 20130627
  Serious: No
  Sender: FDA-Public Use
  Company Number: US-GLAXOSMITHKLINE-A0987615A

PATIENT
  Age: 53 Year
  Sex: Female
  Weight: 62.65 kg

DRUGS (10)
  1. BENLYSTA [Suspect]
     Indication: SYSTEMIC LUPUS ERYTHEMATOSUS
     Dosage: 680MG Cyclic
     Route: 042
     Dates: start: 20120718
  2. CYMBALTA [Concomitant]
     Dosage: 90MG Per day
  3. PREDNISONE [Concomitant]
     Dosage: 20MG Per day
  4. METHADONE [Concomitant]
     Dosage: 10MG Per day
  5. DILAUDID [Concomitant]
     Dosage: 4MG Per day
  6. PRILOSEC [Concomitant]
     Dosage: 40MG Per day
  7. ZANAFLEX [Concomitant]
     Dosage: 8MG Per day
  8. XANAX [Concomitant]
  9. PHENERGAN [Concomitant]
  10. ZOFRAN [Concomitant]

REACTIONS (6)
  - Muscle spasms [Recovered/Resolved]
  - Oedema peripheral [Recovered/Resolved]
  - Pain in extremity [Recovered/Resolved]
  - Nausea [Recovered/Resolved]
  - Diarrhoea [Recovered/Resolved]
  - Abdominal pain upper [Recovered/Resolved]
